FAERS Safety Report 7919827-4 (Version None)
Quarter: 2011Q4

REPORT INFORMATION
  Report Type: 
  Country: None (occurrence: None)
  Receive Date: 20111117
  Receipt Date: 20111117
  Transmission Date: 20120403
  Serious: Yes (Life-Threatening, Hospitalization)
  Sender: FDA-Public Use
  Company Number: None

PATIENT
  Age: 65 Year
  Sex: Female
  Weight: 123 kg

DRUGS (1)
  1. LYRICA [Suspect]
     Indication: PAIN
     Dosage: 75MG
     Route: 048
     Dates: start: 20111109, end: 20111109

REACTIONS (4)
  - PHARYNGEAL OEDEMA [None]
  - DYSPNOEA [None]
  - SWOLLEN TONGUE [None]
  - LIP SWELLING [None]
